FAERS Safety Report 7741188-4 (Version None)
Quarter: 2011Q3

REPORT INFORMATION
  Report Type: 
  Country: None (occurrence: None)
  Receive Date: 20110909
  Receipt Date: 20110829
  Transmission Date: 20111222
  Serious: Yes (Hospitalization, Other)
  Sender: FDA-Public Use
  Company Number: US-ELI_LILLY_AND_COMPANY-US201107003423

PATIENT
  Age: 41 Year
  Sex: Male

DRUGS (7)
  1. ZYPREXA [Suspect]
     Dosage: 15 MG, QD
  2. ATIVAN [Concomitant]
  3. ZYPREXA [Suspect]
     Dosage: 10 MG, QD
  4. ZYPREXA [Suspect]
     Indication: AGITATION
     Dosage: 10 MG, QD
     Dates: start: 20040101
  5. COGENTIN [Concomitant]
     Dosage: 2 MG, BID
  6. DEPAKOTE [Concomitant]
     Dosage: 500 MG, QD
  7. ZYPREXA [Suspect]
     Dosage: 5 MG, QD

REACTIONS (7)
  - RHINITIS [None]
  - GASTROOESOPHAGEAL REFLUX DISEASE [None]
  - SELF INJURIOUS BEHAVIOUR [None]
  - BEZOAR [None]
  - AGITATION [None]
  - MULTIPLE ALLERGIES [None]
  - OFF LABEL USE [None]
